FAERS Safety Report 8551611-3 (Version None)
Quarter: 2012Q3

REPORT INFORMATION
  Report Type: 
  Country: None (occurrence: None)
  Receive Date: 20120730
  Receipt Date: 20120724
  Transmission Date: 20120928
  Serious: Yes (Hospitalization)
  Sender: FDA-Public Use
  Company Number: FR-PFIZER INC-2012178143

PATIENT
  Age: 10 Year
  Sex: Female
  Weight: 29 kg

DRUGS (2)
  1. PEDIATRIC ADVIL [Suspect]
     Indication: PYREXIA
  2. PEDIATRIC ADVIL [Suspect]
     Indication: HEADACHE
     Dosage: 300 MG, 4X/DAY
     Route: 048
     Dates: start: 20120622, end: 20120625

REACTIONS (2)
  - IIIRD NERVE DISORDER [None]
  - INFECTION [None]
